FAERS Safety Report 19624297 (Version 2)
Quarter: 2021Q3

REPORT INFORMATION
  Report Type: Report from Study
  Country: US (occurrence: US)
  Receive Date: 20210728
  Receipt Date: 20210728
  Transmission Date: 20211014
  Serious: Yes (Other)
  Sender: FDA-Public Use
  Company Number: US-JAZZ-2021-US-013385

PATIENT
  Sex: Female

DRUGS (6)
  1. XYREM [Suspect]
     Active Substance: SODIUM OXYBATE
     Dosage: 3.5 GRAM, SECOND DOSE
     Route: 048
     Dates: start: 201504, end: 201605
  2. XYREM [Suspect]
     Active Substance: SODIUM OXYBATE
     Indication: CATAPLEXY
     Dosage: DOSE ADJUSTMENT
     Route: 048
     Dates: start: 201203, end: 201503
  3. XYREM [Suspect]
     Active Substance: SODIUM OXYBATE
     Dosage: 4.5 GRAM, FIRST DOSE
     Route: 048
     Dates: start: 201504, end: 201605
  4. XYREM [Suspect]
     Active Substance: SODIUM OXYBATE
     Indication: NARCOLEPSY
     Dosage: 2.25 GRAM, BID
     Route: 048
     Dates: start: 201203, end: 201203
  5. XYREM [Suspect]
     Active Substance: SODIUM OXYBATE
     Dosage: 4.5 GRAM, FIRST DOSE
     Route: 048
     Dates: start: 201702
  6. XYREM [Suspect]
     Active Substance: SODIUM OXYBATE
     Dosage: 3.5 GRAM, SECOND DOSE
     Route: 048
     Dates: start: 201702

REACTIONS (4)
  - Anxiety [Unknown]
  - Hysterectomy [Unknown]
  - Depression [Unknown]
  - Hypertension [Not Recovered/Not Resolved]
